FAERS Safety Report 17212439 (Version 1)
Quarter: 2019Q4

REPORT INFORMATION
  Report Type: Report from Study
  Country: US (occurrence: US)
  Receive Date: 20191230
  Receipt Date: 20191230
  Transmission Date: 20200122
  Serious: Yes (Hospitalization)
  Sender: FDA-Public Use
  Company Number: US-EMD SERONO-9137381

PATIENT
  Age: 57 Year
  Sex: Female
  Weight: 100 kg

DRUGS (1)
  1. REBIF [Suspect]
     Active Substance: INTERFERON BETA-1A
     Indication: PRODUCT USED FOR UNKNOWN INDICATION
     Dosage: REBIF PREFILLED SYRINGE
     Route: 058
     Dates: start: 20040502, end: 201912

REACTIONS (9)
  - Hydronephrosis [Recovering/Resolving]
  - Atrial fibrillation [Recovered/Resolved]
  - Hypotension [Recovering/Resolving]
  - Influenza like illness [Unknown]
  - Weight increased [Not Recovered/Not Resolved]
  - Hysterectomy [Recovering/Resolving]
  - Post procedural complication [Unknown]
  - Pulmonary oedema [Recovering/Resolving]
  - Escherichia infection [Recovering/Resolving]

NARRATIVE: CASE EVENT DATE: 201912
